FAERS Safety Report 6122163-2 (Version None)
Quarter: 2009Q1

REPORT INFORMATION
  Report Type: 
  Country: None (occurrence: None)
  Receive Date: 20090318
  Receipt Date: 20090310
  Transmission Date: 20090719
  Serious: Yes (Other)
  Sender: FDA-Public Use
  Company Number: PHHY2009CA08724

PATIENT

DRUGS (3)
  1. DIOVAN [Suspect]
     Route: 048
  2. MAVIK [Concomitant]
     Dosage: 1 MG, UNK
  3. MAVIK [Concomitant]
     Dosage: 2 MG, UNK

REACTIONS (2)
  - BLOOD ALBUMIN INCREASED [None]
  - BLOOD CREATININE INCREASED [None]
